FAERS Safety Report 16986816 (Version 1)
Quarter: 2019Q4

REPORT INFORMATION
  Report Type: Report from Study
  Country: None (occurrence: BR)
  Receive Date: 20191101
  Receipt Date: 20191101
  Transmission Date: 20200122
  Serious: Yes (Other)
  Sender: FDA-Public Use
  Company Number: BR-ABBVIE-19P-020-2868433-00

PATIENT
  Age: 17 Year
  Sex: Male
  Weight: 65 kg

DRUGS (8)
  1. DEPAKOTE ER [Suspect]
     Active Substance: DIVALPROEX SODIUM
     Indication: EPILEPSY
     Dosage: DAILY DOSE: 15500MG; MORNING (10:00H) 1 TABLET AND NIGHT (22:00H) 2 TABLETS
     Route: 048
     Dates: start: 201812, end: 20190707
  2. KEPPRA [Concomitant]
     Active Substance: LEVETIRACETAM
     Dosage: DOSE IN THE 2ND MONTH; DID NOT WORK
     Route: 048
  3. KEPPRA [Concomitant]
     Active Substance: LEVETIRACETAM
     Dosage: DID NOT WORK
     Route: 048
  4. DEPAKOTE ER [Suspect]
     Active Substance: DIVALPROEX SODIUM
     Dosage: DAILY DOSE: 1000MG; HAD CRISIS WITH THIS THERAPY; MORNING/NIGHT
     Route: 048
     Dates: start: 201908
  5. KEPPRA [Concomitant]
     Active Substance: LEVETIRACETAM
     Indication: SEIZURE PROPHYLAXIS
     Dosage: DOSE IN THE 1ST MONTH; DID NOT WORK
     Route: 048
     Dates: start: 201709
  6. DIVALCON ER [Suspect]
     Active Substance: DIVALPROEX SODIUM
     Indication: EPILEPSY
     Dosage: DAILY DOSE: 1500MG; MORNING 1 TABLET AND NIGHT 2 TABLETS
     Route: 048
     Dates: start: 201907, end: 201908
  7. TEGRETOL [Concomitant]
     Active Substance: CARBAMAZEPINE
     Indication: EPILEPSY
  8. KEPPRA [Concomitant]
     Active Substance: LEVETIRACETAM
     Route: 048
     Dates: end: 201811

REACTIONS (11)
  - Epilepsy [Recovered/Resolved]
  - Inappropriate schedule of product administration [Unknown]
  - Pallor [Unknown]
  - Eye movement disorder [Unknown]
  - Off label use [Unknown]
  - Paralysis [Unknown]
  - Epilepsy [Recovered/Resolved]
  - Confusional state [Unknown]
  - Dizziness [Unknown]
  - Alopecia [Not Recovered/Not Resolved]
  - Peripheral coldness [Unknown]

NARRATIVE: CASE EVENT DATE: 20190721
